FAERS Safety Report 14347312 (Version 1)
Quarter: 2018Q1

REPORT INFORMATION
  Report Type: Spontaneous
  Country: US (occurrence: US)
  Receive Date: 20180102
  Receipt Date: 20180102
  Transmission Date: 20180509
  Serious: Yes (Hospitalization)
  Sender: FDA-Public Use
  Company Number: None

PATIENT
  Age: 85 Year
  Sex: Female
  Weight: 76.4 kg

DRUGS (14)
  1. ALPRAZOLAM. [Concomitant]
     Active Substance: ALPRAZOLAM
  2. ENALAPRIL [Concomitant]
     Active Substance: ENALAPRIL
  3. FENOFIBRATE. [Concomitant]
     Active Substance: FENOFIBRATE
  4. HYDRALAZINE [Concomitant]
     Active Substance: HYDRALAZINE HYDROCHLORIDE
  5. DIGOXIN. [Concomitant]
     Active Substance: DIGOXIN
  6. BUMETANIDE. [Concomitant]
     Active Substance: BUMETANIDE
  7. GLIPIZIDE. [Concomitant]
     Active Substance: GLIPIZIDE
  8. FERROUS SULFATE. [Concomitant]
     Active Substance: FERROUS SULFATE
  9. CARVEDILOL. [Concomitant]
     Active Substance: CARVEDILOL
  10. ACETAMINOPHEN. [Concomitant]
     Active Substance: ACETAMINOPHEN
  11. GLUCAGON. [Concomitant]
     Active Substance: GLUCAGON
  12. ROSUVASTATIN. [Concomitant]
     Active Substance: ROSUVASTATIN
  13. APIXABAN [Suspect]
     Active Substance: APIXABAN
     Indication: ATRIAL FIBRILLATION
     Route: 048
     Dates: start: 20171127, end: 20171226
  14. POTASSIUM CHLORIDE. [Concomitant]
     Active Substance: POTASSIUM CHLORIDE

REACTIONS (7)
  - Gastrointestinal haemorrhage [None]
  - Haematochezia [None]
  - Nausea [None]
  - Haemoglobin decreased [None]
  - Haematocrit decreased [None]
  - Vomiting [None]
  - Diarrhoea [None]

NARRATIVE: CASE EVENT DATE: 20171226
